FAERS Safety Report 8434339-X (Version None)
Quarter: 2012Q2

REPORT INFORMATION
  Report Type: 
  Country: None (occurrence: None)
  Receive Date: 20120613
  Receipt Date: 20120611
  Transmission Date: 20120825
  Serious: Yes (Other)
  Sender: FDA-Public Use
  Company Number: GB-MERCK-1206USA01777

PATIENT
  Age: 56 Year
  Sex: Male
  Weight: 99 kg

DRUGS (7)
  1. NEBIVOLOL [Concomitant]
     Route: 065
  2. SIMVASTATIN [Concomitant]
     Route: 048
  3. FUROSEMIDE [Concomitant]
     Route: 065
  4. JANUVIA [Suspect]
     Route: 048
  5. WARFARIN [Concomitant]
     Route: 065
  6. RAMIPRIL [Concomitant]
     Route: 065
  7. OMEPRAZOLE [Concomitant]
     Route: 065

REACTIONS (3)
  - MALAISE [None]
  - ABDOMINAL DISTENSION [None]
  - DIARRHOEA [None]
